FAERS Safety Report 6804098-2 (Version None)
Quarter: 2010Q2

REPORT INFORMATION
  Report Type: 
  Country: None (occurrence: None)
  Receive Date: 20100628
  Receipt Date: 20070517
  Transmission Date: 20101027
  Serious: No
  Sender: FDA-Public Use
  Company Number: US-PFIZER INC-2006126362

PATIENT
  Sex: Male

DRUGS (2)
  1. PROCARDIA [Suspect]
  2. NORVASC [Suspect]

REACTIONS (2)
  - OVERDOSE [None]
  - RENAL IMPAIRMENT [None]
